FAERS Safety Report 5422431-3 (Version None)
Quarter: 2007Q3

REPORT INFORMATION
  Report Type: 
  Country: None (occurrence: None)
  Receive Date: 20070822
  Receipt Date: 20070813
  Transmission Date: 20080115
  Serious: Yes (Disabling)
  Sender: FDA-Public Use
  Company Number: B0483123A

PATIENT
  Age: 6 Month

DRUGS (2)
  1. LAMICTAL [Suspect]
     Indication: EPILEPSY
  2. LAMICTAL [Suspect]
     Dosage: 500MG PER DAY

REACTIONS (4)
  - DRUG EXPOSURE DURING PREGNANCY [None]
  - DRUG EXPOSURE VIA BREAST MILK [None]
  - ENAMEL ANOMALY [None]
  - TOOTH DISORDER [None]
